FAERS Safety Report 17062208 (Version 3)
Quarter: 2020Q4

REPORT INFORMATION
  Report Type: Report from Study
  Country: NL (occurrence: NL)
  Receive Date: 20191122
  Receipt Date: 20201023
  Transmission Date: 20210113
  Serious: Yes (Disabling)
  Sender: FDA-Public Use
  Company Number: NL-EMD SERONO-9130019

PATIENT
  Age: 43 Year
  Sex: Female

DRUGS (2)
  1. REBIF [Suspect]
     Active Substance: INTERFERON BETA-1A
     Route: 058
  2. REBIF [Suspect]
     Active Substance: INTERFERON BETA-1A
     Indication: RELAPSING-REMITTING MULTIPLE SCLEROSIS
     Dosage: UNSPECIFIED DOSE
     Route: 058

REACTIONS (7)
  - Heart rate increased [Recovered/Resolved]
  - Balance disorder [Unknown]
  - Disability [Unknown]
  - Feeling abnormal [Recovered/Resolved]
  - Nausea [Recovered/Resolved]
  - Influenza like illness [Recovered/Resolved]
  - Injection site erythema [Recovering/Resolving]

NARRATIVE: CASE EVENT DATE: 2020
